FAERS Safety Report 8310531-X (Version None)
Quarter: 2012Q2

REPORT INFORMATION
  Report Type: 
  Country: None (occurrence: None)
  Receive Date: 20120425
  Receipt Date: 20120413
  Transmission Date: 20120825
  Serious: Yes (Hospitalization)
  Sender: FDA-Public Use
  Company Number: JP-ROCHE-1057550

PATIENT
  Age: 63 Year
  Sex: Female

DRUGS (5)
  1. NO DRUG ADMINISTERED [Suspect]
     Indication: HEPATITIS C
     Route: 058
     Dates: start: 20111101
  2. NO DRUG ADMINISTERED [Suspect]
     Dosage: 40 I?G ALMOST 60 EVERY WEEK THOUGH IT WAS TWICE I?G.
     Route: 058
     Dates: end: 20120326
  3. ARTANE [Suspect]
     Indication: PRODUCT USED FOR UNKNOWN INDICATION
     Dosage: DOSAGE IS UNCERTAIN.
     Route: 048
  4. UBRETID [Suspect]
     Indication: PRODUCT USED FOR UNKNOWN INDICATION
     Dosage: DOSAGE IS UNCERTAIN.
     Route: 065
  5. RISPERDAL [Suspect]
     Indication: PRODUCT USED FOR UNKNOWN INDICATION
     Dosage: DOSAGE IS UNCERTAIN.
     Route: 048

REACTIONS (3)
  - HYPOKALAEMIA [None]
  - BLOOD CREATINE PHOSPHOKINASE INCREASED [None]
  - PYREXIA [None]
